FAERS Safety Report 8275626 (Version 2)
Quarter: 2013Q1

REPORT INFORMATION
  Report Type: Spontaneous
  Country: FR (occurrence: FR)
  Receive Date: 20111205
  Receipt Date: 20130131
  Transmission Date: 20140127
  Serious: Yes (Life-Threatening, Hospitalization, Other)
  Sender: FDA-Public Use
  Company Number: FR-PFIZER INC-2011293219

PATIENT
  Age: 71 Year
  Sex: Female

DRUGS (7)
  1. LYRICA [Suspect]
     Dosage: UNK
     Route: 048
     Dates: start: 201107
  2. CERTICAN [Suspect]
     Dosage: 3 MG/DAY
     Route: 048
  3. CERTICAN [Suspect]
     Dosage: 3 MG/DAY
     Route: 048
     Dates: start: 20110506
  4. CELLCEPT [Suspect]
     Dosage: 1.5 G/DAY
     Route: 048
     Dates: start: 2007
  5. PANTOPRAZOLE [Suspect]
     Dosage: UNK
     Route: 048
  6. ARANESP [Suspect]
     Dosage: UNK
     Route: 048
     Dates: start: 200907
  7. KARDEGIC [Suspect]
     Dosage: UNK
     Route: 048
     Dates: start: 2007

REACTIONS (1)
  - Pneumonia [Recovered/Resolved]
